FAERS Safety Report 23044253 (Version 2)
Quarter: 2023Q4

REPORT INFORMATION
  Report Type: Spontaneous
  Country: US (occurrence: US)
  Receive Date: 20231009
  Receipt Date: 20231209
  Transmission Date: 20240110
  Serious: No
  Sender: FDA-Public Use
  Company Number: US-SA-SAC20231003000595

PATIENT
  Age: 8 Year
  Sex: Female

DRUGS (2)
  1. DUPIXENT [Suspect]
     Active Substance: DUPILUMAB
     Indication: Asthma
     Dosage: 600 MG, 1X
     Route: 058
     Dates: start: 200303, end: 202303
  2. DUPIXENT [Suspect]
     Active Substance: DUPILUMAB
     Indication: Eczema
     Dosage: 300 MG, Q4W
     Route: 058
     Dates: start: 2023

REACTIONS (13)
  - Sensitivity to weather change [Not Recovered/Not Resolved]
  - Cough [Not Recovered/Not Resolved]
  - Eczema [Not Recovered/Not Resolved]
  - Scab [Not Recovered/Not Resolved]
  - Rash [Not Recovered/Not Resolved]
  - Rash macular [Not Recovered/Not Resolved]
  - Scratch [Not Recovered/Not Resolved]
  - Initial insomnia [Not Recovered/Not Resolved]
  - Impaired quality of life [Not Recovered/Not Resolved]
  - Mood altered [Not Recovered/Not Resolved]
  - Pruritus [Not Recovered/Not Resolved]
  - Nasopharyngitis [Not Recovered/Not Resolved]
  - Asthma [Not Recovered/Not Resolved]

NARRATIVE: CASE EVENT DATE: 20230101
